FAERS Safety Report 10703486 (Version 1)
Quarter: 2015Q1

REPORT INFORMATION
  Report Type: Spontaneous
  Country: CA (occurrence: CA)
  Receive Date: 20150112
  Receipt Date: 20150112
  Transmission Date: 20150721
  Serious: Yes (Hospitalization)
  Sender: FDA-Public Use
  Company Number: CA-ACCORD-027996

PATIENT
  Age: 49 Year
  Sex: Female

DRUGS (2)
  1. FLUOROURACIL. [Suspect]
     Active Substance: FLUOROURACIL
     Indication: BLADDER TRANSITIONAL CELL CARCINOMA
     Dosage: 1000MG/M^2/DAY ? 4 DAYS
  2. CISPLATIN. [Concomitant]
     Active Substance: CISPLATIN
     Indication: BLADDER TRANSITIONAL CELL CARCINOMA

REACTIONS (7)
  - Ventricular dysfunction [Recovering/Resolving]
  - Cardiogenic shock [Recovered/Resolved]
  - Cardiomyopathy [Unknown]
  - Respiratory failure [Recovered/Resolved]
  - Pericarditis [Recovered/Resolved]
  - Pleural effusion [Unknown]
  - Renal impairment [Recovered/Resolved]
